FAERS Safety Report 6958795-9 (Version None)
Quarter: 2010Q3

REPORT INFORMATION
  Report Type: 
  Country: None (occurrence: None)
  Receive Date: 20100831
  Receipt Date: 20100823
  Transmission Date: 20110219
  Serious: Yes (Hospitalization, Other)
  Sender: FDA-Public Use
  Company Number: PHHY2010TW50803

PATIENT
  Sex: Male

DRUGS (2)
  1. GLEEVEC [Suspect]
     Indication: GASTROINTESTINAL STROMAL TUMOUR
     Dosage: 300 MG, UNK
     Route: 048
     Dates: start: 20080619
  2. SUTENT [Suspect]
     Dosage: 3 TABLETS
     Dates: start: 20100729

REACTIONS (3)
  - DECREASED APPETITE [None]
  - MASS [None]
  - WEIGHT DECREASED [None]
